FAERS Safety Report 11599617 (Version 2)
Quarter: 2015Q4

REPORT INFORMATION
  Report Type: Report from Study
  Country: JP (occurrence: JP)
  Receive Date: 20151006
  Receipt Date: 20151109
  Transmission Date: 20160304
  Serious: Yes (Hospitalization, Other)
  Sender: FDA-Public Use
  Company Number: JP-009507513-1412JPN009274

PATIENT
  Age: 51 Year
  Sex: Male

DRUGS (19)
  1. VIREAD [Suspect]
     Active Substance: TENOFOVIR DISOPROXIL FUMARATE
     Indication: HIV INFECTION
     Dosage: 300 MG. DIVIDED DOSE. FREQUENCY UNKNOWN
     Route: 048
     Dates: start: 20131127
  2. SEROQUEL [Concomitant]
     Active Substance: QUETIAPINE FUMARATE
     Indication: ANXIETY
  3. ABILIFY [Concomitant]
     Active Substance: ARIPIPRAZOLE
     Indication: DEPRESSION
     Dosage: 6 MG, QD
     Route: 048
  4. AKINETON [Concomitant]
     Active Substance: BIPERIDEN HYDROCHLORIDE
     Indication: INSOMNIA
  5. RIVOTRIL [Concomitant]
     Active Substance: CLONAZEPAM
     Indication: ANXIETY
     Dosage: 0.5 MG, QD (FORMULATION: POR)
     Route: 048
  6. SEROQUEL [Concomitant]
     Active Substance: QUETIAPINE FUMARATE
     Indication: DEPRESSION
     Dosage: 25 MG, QD (FORMULATION POR)
     Route: 048
  7. AMOBAN [Concomitant]
     Active Substance: ZOPICLONE
     Indication: INSOMNIA
  8. BLOPRESS [Concomitant]
     Active Substance: CANDESARTAN CILEXETIL
     Indication: HYPERTENSION
     Dosage: 8 MG, QD (FORMULATION: POR)
     Route: 048
     Dates: end: 20131126
  9. TRUVADA [Concomitant]
     Active Substance: EMTRICITABINE\TENOFOVIR DISOPROXIL FUMARATE
     Indication: HIV INFECTION
     Dosage: 1 DF, QD
     Route: 048
     Dates: start: 20120519, end: 20131125
  10. RIVOTRIL [Concomitant]
     Active Substance: CLONAZEPAM
     Indication: DEPRESSION
  11. JZOLOFT [Concomitant]
     Active Substance: SERTRALINE HYDROCHLORIDE
     Indication: DEPRESSION
     Dosage: 100 MG, QD(FORMULATION: POR)
     Route: 048
  12. MAGMITT [Concomitant]
     Active Substance: MAGNESIUM OXIDE
     Indication: PROPHYLAXIS
     Dosage: 330 MG, BID
     Route: 048
     Dates: end: 20150124
  13. ISENTRESS [Suspect]
     Active Substance: RALTEGRAVIR POTASSIUM
     Indication: HIV INFECTION
     Dosage: 400 MG, BID
     Route: 048
     Dates: start: 20120519
  14. AMOBAN [Concomitant]
     Active Substance: ZOPICLONE
     Indication: ANXIETY
     Dosage: (FORMULATION :POR) 7.5 MG, QD
     Route: 048
  15. EPZICOM [Suspect]
     Active Substance: ABACAVIR SULFATE\LAMIVUDINE
     Indication: HIV INFECTION
     Dosage: DIVIDED DOSE FREQUENCY UNKNOWN. 1 TABLET
     Route: 048
     Dates: start: 20131126
  16. RETROVIR [Suspect]
     Active Substance: ZIDOVUDINE
     Indication: HIV INFECTION
     Dosage: 300 MG, BID
     Route: 048
     Dates: start: 20130808, end: 20131126
  17. BENZALIN [Concomitant]
     Active Substance: NITRAZEPAM
     Indication: ANXIETY
     Dosage: 10 MG, QD (FORMULATION :POR)
     Route: 048
  18. BENZALIN [Concomitant]
     Active Substance: NITRAZEPAM
     Indication: INSOMNIA
  19. AKINETON [Concomitant]
     Active Substance: BIPERIDEN HYDROCHLORIDE
     Indication: ANXIETY
     Dosage: 1 MG, BID
     Route: 065
     Dates: end: 20140707

REACTIONS (9)
  - AIDS dementia complex [Unknown]
  - Pancytopenia [Not Recovered/Not Resolved]
  - Vitamin B12 decreased [Unknown]
  - Anaemia [Unknown]
  - Lipids increased [Not Recovered/Not Resolved]
  - Memory impairment [Recovering/Resolving]
  - Blood pressure decreased [Unknown]
  - Blood test abnormal [Unknown]
  - Blood folate decreased [Unknown]

NARRATIVE: CASE EVENT DATE: 20130718
